FAERS Safety Report 9519703 (Version 1)
Quarter: 2013Q1

REPORT INFORMATION
  Report Type: Spontaneous
  Country: US (occurrence: None)
  Receive Date: 20130305
  Receipt Date: 20130305
  Transmission Date: 20140127
  Serious: Yes (Hospitalization, Other)
  Sender: FDA-Public Use
  Company Number: 163-21880-12010294

PATIENT
  Age: 80 Year
  Sex: Female

DRUGS (2)
  1. REVLIMID [Suspect]
     Indication: PLASMA CELL MYELOMA
     Dosage: 15 MG, DAILY D1-21, PO
     Route: 048
     Dates: start: 20080128, end: 20090105
  2. VELCADE (UNKNOWN) [Concomitant]

REACTIONS (2)
  - Pneumonia [None]
  - Full blood count decreased [None]
